FAERS Safety Report 13226463 (Version 4)
Quarter: 2019Q2

REPORT INFORMATION
  Report Type: Report from Study
  Country: US (occurrence: US)
  Receive Date: 20170213
  Receipt Date: 20190401
  Transmission Date: 20190711
  Serious: No
  Sender: FDA-Public Use
  Company Number: US-VANDA PHARMACEUTICALS, INC-2016TASUS001445

PATIENT
  Age: 56 Year
  Sex: Female

DRUGS (1)
  1. HETLIOZ [Suspect]
     Active Substance: TASIMELTEON
     Indication: NON-24-HOUR SLEEP-WAKE DISORDER
     Dosage: 20 MG, QD 1 HOUR BEFORE SLEEP
     Route: 048
     Dates: start: 20141024

REACTIONS (3)
  - Product administration error [Unknown]
  - Abnormal sleep-related event [Not Recovered/Not Resolved]
  - Drug ineffective [Unknown]
